FAERS Safety Report 9559737 (Version 2)
Quarter: 2013Q4

REPORT INFORMATION
  Report Type: Spontaneous
  Country: JP (occurrence: JP)
  Receive Date: 20130927
  Receipt Date: 20131018
  Transmission Date: 20140711
  Serious: Yes (Hospitalization)
  Sender: FDA-Public Use
  Company Number: JP-SANOFI-AVENTIS-2013SA093323

PATIENT
  Age: 40 Year
  Sex: Male

DRUGS (9)
  1. LANTUS SOLOSTAR [Suspect]
     Indication: TYPE 1 DIABETES MELLITUS
     Dosage: BEFORE BREAKFAST DOSE:40 UNIT(S)
     Route: 058
  2. LANTUS SOLOSTAR [Suspect]
     Indication: TYPE 1 DIABETES MELLITUS
     Dosage: BEFORE DINNER DOSE:56 UNIT(S)
     Route: 058
  3. LANTUS SOLOSTAR [Suspect]
     Indication: TYPE 1 DIABETES MELLITUS
     Dosage: BEFORE DINNER DOSE:14 UNIT(S)
     Route: 058
  4. INSULIN ASPART [Suspect]
     Indication: TYPE 1 DIABETES MELLITUS
     Dosage: BEFORE BREAKFAST DOSE:57 UNIT(S)
     Route: 058
  5. INSULIN ASPART [Suspect]
     Indication: TYPE 1 DIABETES MELLITUS
     Dosage: BEFORE LUNCH DOSE:74 UNIT(S)
     Route: 058
  6. INSULIN ASPART [Suspect]
     Indication: TYPE 1 DIABETES MELLITUS
     Dosage: BEFORE DINNER DOSE:104 UNIT(S)
     Route: 058
  7. INSULIN ASPART [Suspect]
     Indication: TYPE 1 DIABETES MELLITUS
     Dosage: BEFORE BREAKFAST DOSE:8 UNIT(S)
     Route: 058
  8. INSULIN ASPART [Suspect]
     Indication: TYPE 1 DIABETES MELLITUS
     Dosage: BEFORE LUNCH DOSE:8 UNIT(S)
     Route: 058
  9. INSULIN ASPART [Suspect]
     Indication: TYPE 1 DIABETES MELLITUS
     Dosage: BEFORE DINNER DOSE:8 UNIT(S)
     Route: 058

REACTIONS (7)
  - Diabetic ketoacidosis [Recovered/Resolved]
  - Diarrhoea [Recovered/Resolved]
  - Vomiting [Recovered/Resolved]
  - Blood pH decreased [Recovered/Resolved]
  - Blood bicarbonate decreased [Recovered/Resolved]
  - Injection site induration [Unknown]
  - Hypoglycaemia [Recovered/Resolved]
